FAERS Safety Report 5696925-X (Version None)
Quarter: 2008Q2

REPORT INFORMATION
  Report Type: 
  Country: None (occurrence: None)
  Receive Date: 20080408
  Receipt Date: 20070312
  Transmission Date: 20081010
  Serious: No
  Sender: FDA-Public Use
  Company Number: US-BAYER-US-2007-001896

PATIENT
  Age: 22 Year
  Sex: Female
  Weight: 68 kg

DRUGS (3)
  1. YASMIN [Suspect]
     Indication: ORAL CONTRACEPTION
     Route: 048
     Dates: start: 20051101, end: 20061217
  2. YASMIN [Suspect]
     Route: 048
     Dates: start: 20061224, end: 20070117
  3. THERMOGENIC CYROTAB [Concomitant]
     Indication: WEIGHT DECREASED

REACTIONS (2)
  - DRUG DOSE OMISSION [None]
  - PREGNANCY ON ORAL CONTRACEPTIVE [None]
